FAERS Safety Report 6324247-2 (Version None)
Quarter: 2009Q3

REPORT INFORMATION
  Report Type: 
  Country: None (occurrence: None)
  Receive Date: 20090824
  Receipt Date: 20090520
  Transmission Date: 20100115
  Serious: No
  Sender: FDA-Public Use
  Company Number: US-ABBOTT-09P-163-0574730-00

PATIENT
  Age: 69 Year
  Sex: Female

DRUGS (3)
  1. NIASPAN [Suspect]
     Indication: DRUG USE FOR UNKNOWN INDICATION
  2. NASALCROM [Suspect]
     Indication: DRUG USE FOR UNKNOWN INDICATION
     Route: 045
  3. UNSPECIFIED BLOOD PRESSURE MEDICATION [Concomitant]
     Indication: BLOOD PRESSURE

REACTIONS (3)
  - CHOKING SENSATION [None]
  - PALPITATIONS [None]
  - PRURITUS [None]
